FAERS Safety Report 22126266 (Version 1)
Quarter: 2023Q1

REPORT INFORMATION
  Report Type: Spontaneous
  Country: US (occurrence: US)
  Receive Date: 20230322
  Receipt Date: 20230322
  Transmission Date: 20230417
  Serious: No
  Sender: FDA-Public Use
  Company Number: US-SA-SAC20230321000549

PATIENT
  Age: 13 Year
  Sex: Female

DRUGS (15)
  1. DUPIXENT [Suspect]
     Active Substance: DUPILUMAB
     Indication: Asthma
     Dosage: 300 MG, QOW
     Route: 058
     Dates: start: 20230221
  2. AZITHROMYCIN [Concomitant]
     Active Substance: AZITHROMYCIN
  3. DULCOLAX (BISACODYL) [Concomitant]
     Active Substance: BISACODYL
  4. FLONASE [Concomitant]
     Active Substance: FLUTICASONE PROPIONATE
  5. FLOVENT HFA [Concomitant]
     Active Substance: FLUTICASONE PROPIONATE
  6. IPRATROPIUM [Concomitant]
     Active Substance: IPRATROPIUM
  7. HYDROCORTISONE ACETATE [Concomitant]
     Active Substance: HYDROCORTISONE ACETATE
  8. MIRALAX [Concomitant]
     Active Substance: POLYETHYLENE GLYCOL 3350
  9. MONTELUKAST [Concomitant]
     Active Substance: MONTELUKAST SODIUM
  10. NEXIUM I.V. [Concomitant]
     Active Substance: ESOMEPRAZOLE SODIUM
  11. NORDITROPIN [Concomitant]
     Active Substance: SOMATROPIN
  12. PATANASE [Concomitant]
     Active Substance: OLOPATADINE HYDROCHLORIDE
  13. SODIUM CHLORIDE [Concomitant]
     Active Substance: SODIUM CHLORIDE
  14. TRETINOIN [Concomitant]
     Active Substance: TRETINOIN
  15. METRONIDAZOLE [Concomitant]
     Active Substance: METRONIDAZOLE

REACTIONS (3)
  - Sleep disorder [Recovered/Resolved]
  - Asthma [Recovered/Resolved]
  - Impaired quality of life [Recovered/Resolved]

NARRATIVE: CASE EVENT DATE: 20230101
